FAERS Safety Report 5965570-0 (Version None)
Quarter: 2008Q4

REPORT INFORMATION
  Report Type: 
  Country: None (occurrence: None)
  Receive Date: 20081119
  Receipt Date: 20080909
  Transmission Date: 20090506
  Serious: No
  Sender: FDA-Public Use
  Company Number: WAES 0809USA01381

PATIENT
  Age: 71 Year
  Sex: Male

DRUGS (4)
  1. JANUVIA [Suspect]
     Indication: TYPE 2 DIABETES MELLITUS
     Dosage: PO
     Route: 048
     Dates: start: 20080905
  2. CRESTOR [Concomitant]
  3. LEVEMIR [Concomitant]
  4. METFORMIN HCL [Concomitant]

REACTIONS (2)
  - ABDOMINAL DISTENSION [None]
  - INCREASED APPETITE [None]
